FAERS Safety Report 7507025-8 (Version None)
Quarter: 2011Q2

REPORT INFORMATION
  Report Type: 
  Country: None (occurrence: None)
  Receive Date: 20110526
  Receipt Date: 20110512
  Transmission Date: 20111010
  Serious: No
  Sender: FDA-Public Use
  Company Number: US-B.I. PHARMACEUTICALS,INC./RIDGEFIELD-2011-BP-12963BP

PATIENT
  Age: 78 Year
  Sex: Female

DRUGS (6)
  1. PRADAXA [Suspect]
     Indication: ATRIAL FIBRILLATION
     Dosage: 300 MG
     Route: 048
     Dates: start: 20110428, end: 20110515
  2. INSULIN [Concomitant]
     Indication: DIABETES MELLITUS
  3. BENICAR [Concomitant]
     Indication: HYPERTENSION
  4. MULTI-VITAMIN [Concomitant]
     Indication: PROPHYLAXIS
  5. CRESTOR [Concomitant]
     Indication: BLOOD CHOLESTEROL INCREASED
  6. PRADAXA [Suspect]
     Dosage: 150 MG
     Route: 048
     Dates: start: 20110518

REACTIONS (5)
  - SKIN HYPERPIGMENTATION [None]
  - MUSCLE SPASMS [None]
  - ARTHRALGIA [None]
  - FATIGUE [None]
  - PAIN IN EXTREMITY [None]
